FAERS Safety Report 5685606-4 (Version None)
Quarter: 2008Q1

REPORT INFORMATION
  Report Type: 
  Country: None (occurrence: None)
  Receive Date: 20080328
  Receipt Date: 20080312
  Transmission Date: 20080703
  Serious: Yes (Other)
  Sender: FDA-Public Use
  Company Number: GB-BAYER-200810694BNE

PATIENT
  Age: 72 Year
  Sex: Male

DRUGS (2)
  1. MABCAMPATH [Suspect]
  2. PREDNISOLONE [Concomitant]

REACTIONS (2)
  - DIARRHOEA [None]
  - MUSCULAR WEAKNESS [None]
